FAERS Safety Report 14846667 (Version 1)
Quarter: 2018Q2

REPORT INFORMATION
  Report Type: Spontaneous
  Country: DE (occurrence: DE)
  Receive Date: 20180504
  Receipt Date: 20180504
  Transmission Date: 20180711
  Serious: Yes (Congenital Anomaly, Other)
  Sender: FDA-Public Use
  Company Number: DE-AUROBINDO-AUR-APL-2018-023784

PATIENT
  Age: 1 Day
  Sex: Male
  Weight: 3.6 kg

DRUGS (1)
  1. SERTRALINE [Suspect]
     Active Substance: SERTRALINE HYDROCHLORIDE
     Indication: DEPRESSION
     Dosage: 75 [MG/D ]
     Route: 064
     Dates: start: 20170215, end: 20171126

REACTIONS (5)
  - Hydrocele [Unknown]
  - Hypertonia neonatal [Recovering/Resolving]
  - Patent ductus arteriosus [Unknown]
  - Agitation neonatal [Recovering/Resolving]
  - Atrial septal defect [Unknown]

NARRATIVE: CASE EVENT DATE: 20171126
